FAERS Safety Report 7276453-0 (Version None)
Quarter: 2011Q1

REPORT INFORMATION
  Report Type: 
  Country: None (occurrence: None)
  Receive Date: 20110204
  Receipt Date: 20110124
  Transmission Date: 20110831
  Serious: Yes (Hospitalization)
  Sender: FDA-Public Use
  Company Number: LK-WATSON-2011-01405

PATIENT
  Age: 60 Year
  Sex: Male

DRUGS (2)
  1. PREDNISOLONE [Suspect]
     Indication: TYPE 2 LEPRA REACTION
     Dosage: 15 MG, DAILY
  2. THALIDOMIDE [Suspect]
     Indication: TYPE 2 LEPRA REACTION
     Dosage: 100 MG, BID

REACTIONS (2)
  - PULMONARY EMBOLISM [None]
  - DEEP VEIN THROMBOSIS [None]
